FAERS Safety Report 16444088 (Version 1)
Quarter: 2019Q2

REPORT INFORMATION
  Report Type: Spontaneous
  Country: GB (occurrence: GB)
  Receive Date: 20190618
  Receipt Date: 20190618
  Transmission Date: 20190711
  Serious: Yes (Hospitalization)
  Sender: FDA-Public Use
  Company Number: GB-ACCORD-133407

PATIENT
  Age: 64 Year
  Sex: Female
  Weight: 73 kg

DRUGS (18)
  1. FOSTAIR [Concomitant]
     Active Substance: BECLOMETHASONE\FORMOTEROL
  2. LORATADINE. [Concomitant]
     Active Substance: LORATADINE
  3. UNIPHYLLIN CONTINUS [Concomitant]
     Active Substance: THEOPHYLLINE ANHYDROUS
  4. ENOXAPARIN [Concomitant]
     Active Substance: ENOXAPARIN
  5. AIRFLUSAL [Concomitant]
     Active Substance: FLUTICASONE FUROATE\SALMETEROL XINAFOATE
  6. SALBUTAMOL [Concomitant]
     Active Substance: ALBUTEROL
  7. PARACETAMOL [Concomitant]
     Active Substance: ACETAMINOPHEN
  8. FLUTICASONE. [Concomitant]
     Active Substance: FLUTICASONE
  9. ITRACONAZOLE. [Suspect]
     Active Substance: ITRACONAZOLE
     Indication: ASPERGILLUS INFECTION
     Route: 048
     Dates: start: 20190329, end: 20190429
  10. LEVOTHYROXINE. [Concomitant]
     Active Substance: LEVOTHYROXINE
  11. SIMVASTATIN. [Interacting]
     Active Substance: SIMVASTATIN
     Indication: HYPERCHOLESTEROLAEMIA
     Dosage: AT NIGHT
     Route: 048
     Dates: start: 20150101, end: 20190429
  12. MONTELUKAST [Concomitant]
     Active Substance: MONTELUKAST SODIUM
  13. CITALOPRAM [Concomitant]
     Active Substance: CITALOPRAM HYDROBROMIDE
  14. AMLODIPINE [Concomitant]
     Active Substance: AMLODIPINE BESYLATE
  15. OMEPRAZOLE. [Concomitant]
     Active Substance: OMEPRAZOLE
  16. CO-AMOXICLAV [Concomitant]
     Active Substance: AMOXICILLIN\CLAVULANATE POTASSIUM
     Indication: PNEUMONIA
     Route: 042
  17. LEVOTHYROXINE. [Concomitant]
     Active Substance: LEVOTHYROXINE
  18. CLARITHROMYCIN. [Concomitant]
     Active Substance: CLARITHROMYCIN
     Indication: PNEUMONIA

REACTIONS (10)
  - Muscle spasms [Not Recovered/Not Resolved]
  - Chills [Unknown]
  - Liver function test abnormal [Recovering/Resolving]
  - Contraindicated product administered [Unknown]
  - Labelled drug-drug interaction medication error [Unknown]
  - Rales [Unknown]
  - Pleural effusion [Unknown]
  - Dyspnoea [Unknown]
  - Confusional state [Unknown]
  - Pneumonia [Unknown]

NARRATIVE: CASE EVENT DATE: 20190401
